FAERS Safety Report 21948185 (Version 2)
Quarter: 2023Q1

REPORT INFORMATION
  Report Type: Spontaneous
  Country: ZA (occurrence: ZA)
  Receive Date: 20230203
  Receipt Date: 20230220
  Transmission Date: 20230417
  Serious: Yes (Life-Threatening, Other)
  Sender: FDA-Public Use
  Company Number: ZA-TEVA-2023-ZA-2851827

PATIENT

DRUGS (3)
  1. OXALIPLATIN [Suspect]
     Active Substance: OXALIPLATIN
     Indication: Colorectal cancer metastatic
     Dosage: ROUTE: {INFUSION}, OVER 4H ON DAY 1
     Route: 050
  2. OXALIPLATIN [Suspect]
     Active Substance: OXALIPLATIN
     Dosage: ROUTE: {INFUSION}, OVER 2H ON DAY 1
     Route: 050
  3. XELODA [Suspect]
     Active Substance: CAPECITABINE
     Indication: Colorectal cancer metastatic
     Dosage: ON DAYS 1-14 OF EVERY CYCLE IN TWO DIVIDED DOSES AT 12H INTERVALS
     Route: 048

REACTIONS (2)
  - Arrhythmia [Unknown]
  - Chest pain [Unknown]
